FAERS Safety Report 11151186 (Version 1)
Quarter: 2015Q2

REPORT INFORMATION
  Report Type: Spontaneous
  Country: BR (occurrence: None)
  Receive Date: 20150528
  Receipt Date: 20150528
  Transmission Date: 20150821
  Serious: Yes (Hospitalization, Other)
  Sender: FDA-Public Use
  Company Number: 8025735

PATIENT
  Sex: Female

DRUGS (1)
  1. EUTHYROX [Suspect]
     Active Substance: LEVOTHYROXINE SODIUM
     Indication: THYROID DISORDER
     Route: 048

REACTIONS (7)
  - Hypertension [None]
  - Malaise [None]
  - Drug dose omission [None]
  - Blood cholesterol increased [None]
  - Angina pectoris [None]
  - Cerebrovascular accident [None]
  - Weight increased [None]
